FAERS Safety Report 7310418-5 (Version None)
Quarter: 2011Q1

REPORT INFORMATION
  Report Type: 
  Country: None (occurrence: None)
  Receive Date: 20110224
  Receipt Date: 20100728
  Transmission Date: 20110831
  Serious: No
  Sender: FDA-Public Use
  Company Number: US-BRISTOL-MYERS SQUIBB COMPANY-15217359

PATIENT
  Sex: Female

DRUGS (2)
  1. LIPITOR [Suspect]
  2. METFORMIN HCL [Suspect]

REACTIONS (3)
  - FATIGUE [None]
  - WEIGHT DECREASED [None]
  - PAIN IN EXTREMITY [None]
